FAERS Safety Report 6698335-5 (Version None)
Quarter: 2010Q2

REPORT INFORMATION
  Report Type: 
  Country: None (occurrence: None)
  Receive Date: 20100427
  Receipt Date: 20100422
  Transmission Date: 20101027
  Serious: Yes (Other)
  Sender: FDA-Public Use
  Company Number: GB-NAPPMUNDI-GBR-2010-0006482

PATIENT
  Sex: Male

DRUGS (1)
  1. OXYCODONE HCL [Suspect]
     Indication: DRUG USE FOR UNKNOWN INDICATION
     Route: 065

REACTIONS (2)
  - BLOOD TESTOSTERONE DECREASED [None]
  - GYNAECOMASTIA [None]
